FAERS Safety Report 4312087-5 (Version None)
Quarter: 2004Q1

REPORT INFORMATION
  Report Type: 
  Country: None (occurrence: None)
  Receive Date: 20040303
  Receipt Date: 20040218
  Transmission Date: 20041129
  Serious: Yes (Life-Threatening)
  Sender: FDA-Public Use
  Company Number: RENA-10837

PATIENT
  Age: 50 Year
  Sex: Male
  Weight: 71 kg

DRUGS (11)
  1. RENAGEL [Suspect]
     Indication: HYPERPHOSPHATAEMIA
     Dosage: 3 G QD PO
     Route: 048
     Dates: start: 20031116
  2. RENAGEL [Suspect]
     Indication: HYPERPHOSPHATAEMIA
     Dosage: 1.5 G QD PO
     Route: 048
  3. TEPRENONE [Concomitant]
  4. LAFUTIDINE [Concomitant]
  5. LOPERAMIDE HYDROCHLORIDE [Concomitant]
  6. CALCIUM POLYSTYRENE SULFONATE [Concomitant]
  7. AMLODIPINE BESYLATE [Concomitant]
  8. METOPROLOL TARTRATE [Concomitant]
  9. DOXAZOSIN MESYLATE [Concomitant]
  10. VALSARTAN [Concomitant]
  11. METHYLDOPA [Concomitant]

REACTIONS (9)
  - CONSTIPATION [None]
  - DIARRHOEA [None]
  - DRUG INEFFECTIVE [None]
  - GASTROINTESTINAL PERFORATION [None]
  - HYPERCALCAEMIA [None]
  - HYPERPHOSPHATAEMIA [None]
  - PERITONITIS [None]
  - PYREXIA [None]
  - SUTURE RUPTURE [None]
